FAERS Safety Report 8940654 (Version 4)
Quarter: 2013Q3

REPORT INFORMATION
  Report Type: Spontaneous
  Country: CA (occurrence: CA)
  Receive Date: 20121203
  Receipt Date: 20130927
  Transmission Date: 20140515
  Serious: Yes (Other)
  Sender: FDA-Public Use
  Company Number: CA-ROCHE-1162511

PATIENT
  Age: 48 Year
  Sex: Female

DRUGS (6)
  1. XOLAIR [Suspect]
     Indication: ASTHMA
     Route: 058
     Dates: start: 20111026
  2. ALVESCO [Concomitant]
  3. INSULIN [Concomitant]
  4. CRESTOR [Concomitant]
  5. SEREVENT [Concomitant]
  6. VENTOLIN [Concomitant]

REACTIONS (6)
  - Fall [Unknown]
  - Pain [Unknown]
  - Gait disturbance [Unknown]
  - Joint swelling [Unknown]
  - Joint injury [Unknown]
  - Arthralgia [Unknown]
